FAERS Safety Report 8440674-1 (Version None)
Quarter: 2012Q2

REPORT INFORMATION
  Report Type: 
  Country: None (occurrence: None)
  Receive Date: 20120615
  Receipt Date: 20120606
  Transmission Date: 20120825
  Serious: Yes (Hospitalization, Other)
  Sender: FDA-Public Use
  Company Number: US-BAYER-2012-030058

PATIENT
  Age: 46 Year
  Sex: Female
  Weight: 88.435 kg

DRUGS (3)
  1. YAZ [Suspect]
     Indication: MENOPAUSAL SYMPTOMS
     Dosage: UNK
     Dates: start: 20060101, end: 20100101
  2. LEXAPRO [Concomitant]
  3. FLUTICASONE PROPIONATE [Concomitant]
     Dosage: 50 MCG

REACTIONS (8)
  - HEPATIC MASS [None]
  - CHEST PAIN [None]
  - FATIGUE [None]
  - ANHEDONIA [None]
  - DEEP VEIN THROMBOSIS [None]
  - OEDEMA PERIPHERAL [None]
  - PULMONARY EMBOLISM [None]
  - DYSPNOEA [None]
